FAERS Safety Report 9984062 (Version 2)
Quarter: 2014Q1

REPORT INFORMATION
  Report Type: Report from Study
  Country: US (occurrence: US)
  Receive Date: 20140305
  Receipt Date: 20140305
  Transmission Date: 20141002
  Serious: No
  Sender: FDA-Public Use
  Company Number: US-ABBVIE-13P-163-1063217-00

PATIENT
  Age: 50 Year
  Sex: Male

DRUGS (16)
  1. HUMIRA [Suspect]
     Indication: CROHN^S DISEASE
     Route: 058
     Dates: start: 20130226, end: 20130226
  2. HUMIRA [Suspect]
     Route: 058
  3. REMICADE [Concomitant]
     Indication: PRODUCT USED FOR UNKNOWN INDICATION
     Dosage: 1 SCOOP - 4 GRAMS DAILY
  4. 6-MP [Concomitant]
     Indication: PRODUCT USED FOR UNKNOWN INDICATION
  5. PRILOSEC [Concomitant]
     Indication: PRODUCT USED FOR UNKNOWN INDICATION
  6. IMODIUM OTC [Concomitant]
     Indication: PRODUCT USED FOR UNKNOWN INDICATION
  7. IRON SUPPLEMENT OTC [Concomitant]
     Indication: PRODUCT USED FOR UNKNOWN INDICATION
  8. AMBIEN [Concomitant]
     Indication: INSOMNIA
  9. LEXAPRO [Concomitant]
     Indication: PRODUCT USED FOR UNKNOWN INDICATION
     Dosage: 20 MG DAILY
     Dates: end: 20130311
  10. LEXAPRO [Concomitant]
     Dosage: 10 MG DAILY ATTEMPTING TO WEEN OFF
  11. VITAMIN C [Concomitant]
     Indication: PRODUCT USED FOR UNKNOWN INDICATION
     Dosage: DAILY
  12. ORGANIC GREEN^S POWDER [Concomitant]
     Indication: PRODUCT USED FOR UNKNOWN INDICATION
     Dosage: DAILY
  13. PROBIOTIC [Concomitant]
     Indication: PRODUCT USED FOR UNKNOWN INDICATION
     Dosage: DAILY
  14. OMEGA 3 FISH OIL [Concomitant]
     Indication: PRODUCT USED FOR UNKNOWN INDICATION
     Dosage: LIQUID
  15. MULTIVITAMIN [Concomitant]
     Indication: PRODUCT USED FOR UNKNOWN INDICATION
     Dosage: LIQUID
  16. ARTEMISIA ABSINTHIUM [Concomitant]
     Indication: PRODUCT USED FOR UNKNOWN INDICATION

REACTIONS (12)
  - Laboratory test abnormal [Not Recovered/Not Resolved]
  - Rash erythematous [Not Recovered/Not Resolved]
  - Rash pruritic [Not Recovered/Not Resolved]
  - Incorrect dose administered [Not Recovered/Not Resolved]
  - Injection site mass [Not Recovered/Not Resolved]
  - Injection site haemorrhage [Not Recovered/Not Resolved]
  - Dizziness [Not Recovered/Not Resolved]
  - Frequent bowel movements [Not Recovered/Not Resolved]
  - Faeces soft [Not Recovered/Not Resolved]
  - Flatulence [Not Recovered/Not Resolved]
  - Rash [Not Recovered/Not Resolved]
  - Laceration [Not Recovered/Not Resolved]
